FAERS Safety Report 6101711-2 (Version None)
Quarter: 2009Q1

REPORT INFORMATION
  Report Type: 
  Country: None (occurrence: None)
  Receive Date: 20090304
  Receipt Date: 20090227
  Transmission Date: 20090719
  Serious: Yes (Hospitalization)
  Sender: FDA-Public Use
  Company Number: A0762404A

PATIENT
  Age: 62 Year
  Sex: Female

DRUGS (7)
  1. ZOFRAN [Suspect]
     Indication: NAUSEA
     Route: 042
  2. CAPECITABINE [Suspect]
     Indication: COLORECTAL CANCER
     Dosage: 1500MG TWICE PER DAY
     Route: 048
     Dates: start: 20080731
  3. OXALIPLATIN [Suspect]
     Indication: COLORECTAL CANCER
     Route: 042
     Dates: start: 20071107
  4. DECADRON [Concomitant]
  5. BEVACIZUMAB [Concomitant]
  6. DEXAMETHASONE [Concomitant]
  7. CHEMOTHERAPY [Concomitant]

REACTIONS (10)
  - BLOOD TEST ABNORMAL [None]
  - DEHYDRATION [None]
  - DIPLOPIA [None]
  - DISEASE PROGRESSION [None]
  - DIZZINESS [None]
  - HYPERSENSITIVITY [None]
  - HYPOAESTHESIA [None]
  - MALAISE [None]
  - THROAT TIGHTNESS [None]
  - UNEVALUABLE EVENT [None]
